FAERS Safety Report 11699879 (Version 2)
Quarter: 2015Q4

REPORT INFORMATION
  Report Type: Spontaneous
  Country: GB (occurrence: GB)
  Receive Date: 20151105
  Receipt Date: 20151120
  Transmission Date: 20160304
  Serious: Yes (Other)
  Sender: FDA-Public Use
  Company Number: GB-TEVA-605012ACC

PATIENT
  Age: 74 Year
  Sex: Female

DRUGS (1)
  1. TRIMETHOPRIM 200 MG TABLETS [Suspect]
     Active Substance: TRIMETHOPRIM
     Indication: KIDNEY INFECTION
     Dosage: 2 DOSAGE FORMS DAILY;
     Dates: start: 20151001, end: 20151007

REACTIONS (4)
  - Drug hypersensitivity [Unknown]
  - Muscle spasms [Recovered/Resolved]
  - Dyspnoea at rest [Recovered/Resolved]
  - Dyspnoea [Recovered/Resolved]

NARRATIVE: CASE EVENT DATE: 20151001
